FAERS Safety Report 25130949 (Version 2)
Quarter: 2025Q2

REPORT INFORMATION
  Report Type: Spontaneous
  Country: CA (occurrence: CA)
  Receive Date: 20250327
  Receipt Date: 20250429
  Transmission Date: 20250716
  Serious: Yes (Other)
  Sender: TAKEDA
  Company Number: CA-TAKEDA-2025TUS030319

PATIENT
  Age: 20 Year
  Sex: Female

DRUGS (1)
  1. LISDEXAMFETAMINE DIMESYLATE [Suspect]
     Active Substance: LISDEXAMFETAMINE DIMESYLATE
     Indication: Product used for unknown indication
     Dates: start: 20241026, end: 20241030

REACTIONS (7)
  - Disturbance in attention [Recovering/Resolving]
  - Depression [Recovering/Resolving]
  - Headache [Recovered/Resolved]
  - Nausea [Recovering/Resolving]
  - Feeling abnormal [Recovering/Resolving]
  - Tearfulness [Recovering/Resolving]
  - Head discomfort [Recovering/Resolving]

NARRATIVE: CASE EVENT DATE: 20241026
